FAERS Safety Report 5357193-1 (Version None)
Quarter: 2007Q2

REPORT INFORMATION
  Report Type: 
  Country: None (occurrence: None)
  Receive Date: 20070612
  Receipt Date: 20070612
  Transmission Date: 20071010
  Serious: Yes (Life-Threatening, Hospitalization)
  Sender: FDA-Public Use
  Company Number: None

PATIENT
  Age: 50 Year
  Sex: Female
  Weight: 79.8331 kg

DRUGS (2)
  1. ZINACEF [Suspect]
     Indication: MYRINGOTOMY
     Dosage: 750MG ONCE IV
     Route: 042
     Dates: start: 20070611, end: 20070611
  2. ZINACEF [Suspect]
     Indication: PREOPERATIVE CARE
     Dosage: 750MG ONCE IV
     Route: 042
     Dates: start: 20070611, end: 20070611

REACTIONS (4)
  - DYSPNOEA [None]
  - GENERALISED OEDEMA [None]
  - HYPOTENSION [None]
  - OEDEMA PERIPHERAL [None]
